FAERS Safety Report 25278891 (Version 2)
Quarter: 2025Q2

REPORT INFORMATION
  Report Type: Report from Study
  Country: US (occurrence: US)
  Receive Date: 20250507
  Receipt Date: 20250610
  Transmission Date: 20250716
  Serious: Yes (Other)
  Sender: PFIZER
  Company Number: US-PFIZER INC-PV202500053634

PATIENT
  Age: 65 Year
  Sex: Male

DRUGS (2)
  1. LORBRENA [Suspect]
     Active Substance: LORLATINIB
     Dosage: 100 MG, 1X/DAY FOR 2 MONTHS
  2. LORBRENA [Suspect]
     Active Substance: LORLATINIB
     Dosage: 75 MG, 1X/DAY

REACTIONS (4)
  - Hypertension [Unknown]
  - Gingival bleeding [Unknown]
  - Blood cholesterol increased [Unknown]
  - Peripheral swelling [Unknown]
